FAERS Safety Report 9135266 (Version 1)
Quarter: 2013Q1

REPORT INFORMATION
  Report Type: Spontaneous
  Country: US (occurrence: US)
  Receive Date: 20130304
  Receipt Date: 20130304
  Transmission Date: 20140127
  Serious: Yes (Other)
  Sender: FDA-Public Use
  Company Number: US-BAYER-2013-026505

PATIENT
  Age: 15 Year
  Sex: Female
  Weight: 47.62 kg

DRUGS (6)
  1. ALEVE CAPLET/TABLET,MIDOL EXTENDED RELIEF CAPLET [Suspect]
     Route: 048
  2. ALEVE CAPLET/TABLET,MIDOL EXTENDED RELIEF CAPLET [Suspect]
     Route: 048
  3. ALLERGY SHOTS [Concomitant]
  4. FLUOXETINE [Concomitant]
  5. ACYCLOVIR [ACICLOVIR] [Concomitant]
     Dosage: UNK UNK, PRN
  6. CLONIDINE [Concomitant]
     Dosage: UNK UNK, PRN

REACTIONS (2)
  - Intentional overdose [None]
  - Suicidal ideation [None]
